FAERS Safety Report 5941846-8 (Version None)
Quarter: 2008Q4

REPORT INFORMATION
  Report Type: 
  Country: None (occurrence: None)
  Receive Date: 20081105
  Receipt Date: 20081027
  Transmission Date: 20090506
  Serious: Yes (Other)
  Sender: FDA-Public Use
  Company Number: JP-ASTRAZENECA-2008AP08085

PATIENT
  Age: 36 Year
  Sex: Female
  Weight: 54 kg

DRUGS (2)
  1. MARCAINE [Suspect]
     Indication: SPINAL ANAESTHESIA
     Route: 024
  2. MORPHINE HCL ELIXIR [Concomitant]
     Indication: SPINAL ANAESTHESIA
     Route: 065

REACTIONS (1)
  - ATRIOVENTRICULAR BLOCK COMPLETE [None]
